FAERS Safety Report 7684026-0 (Version None)
Quarter: 2011Q3

REPORT INFORMATION
  Report Type: 
  Country: None (occurrence: None)
  Receive Date: 20110815
  Receipt Date: 20110811
  Transmission Date: 20111222
  Serious: Yes (Other)
  Sender: FDA-Public Use
  Company Number: GB-PFIZER INC-2011185581

PATIENT
  Age: 47 Year
  Sex: Female
  Weight: 79 kg

DRUGS (2)
  1. SINGULAIR [Interacting]
     Indication: ASTHMA
     Dosage: 10 MG, 1X/DAY
     Route: 048
     Dates: start: 20110706, end: 20110723
  2. SERTRALINE HYDROCHLORIDE [Suspect]
     Indication: DEPRESSION
     Dosage: 50 MG, 2X/DAY
     Dates: start: 20080101

REACTIONS (5)
  - CHEST DISCOMFORT [None]
  - DRUG INTERACTION [None]
  - DEPRESSION [None]
  - CRYING [None]
  - FATIGUE [None]
